FAERS Safety Report 8461232-9 (Version None)
Quarter: 2012Q2

REPORT INFORMATION
  Report Type: 
  Country: None (occurrence: None)
  Receive Date: 20120323
  Receipt Date: 20111021
  Transmission Date: 20120825
  Serious: Yes (Other)
  Sender: FDA-Public Use
  Company Number: 163-21880-11102511

PATIENT
  Age: 66 Year
  Sex: Male
  Weight: 92.9874 kg

DRUGS (9)
  1. AMLODIPINE [Concomitant]
  2. ASPIRIN [Concomitant]
  3. FEXOFENADINE HCL [Concomitant]
  4. REVLIMID [Suspect]
     Indication: MULTIPLE MYELOMA
     Dosage: 25 MG, DAILY X21D, 7D OFF, PO, 15 MG, DAILY X21D, 7D OFF, PO
     Route: 048
     Dates: start: 20110926
  5. CYCLOBENZAPRINE [Concomitant]
  6. DOCUSATE (DOCUSATE) [Suspect]
  7. DICYCLOMINE [Concomitant]
  8. DEXAMETHASONE [Concomitant]
  9. PERCOCET [Concomitant]

REACTIONS (4)
  - RENAL IMPAIRMENT [None]
  - MUSCLE SPASMS [None]
  - DEHYDRATION [None]
  - FATIGUE [None]
